FAERS Safety Report 15165254 (Version 1)
Quarter: 2018Q3

REPORT INFORMATION
  Report Type: Spontaneous
  Country: US (occurrence: US)
  Receive Date: 20180621
  Receipt Date: 20180621
  Transmission Date: 20181010
  Serious: No
  Sender: FDA-Public Use
  Company Number: None

PATIENT
  Age: 32 Year
  Sex: Female

DRUGS (1)
  1. STELARA [Suspect]
     Active Substance: USTEKINUMAB
     Indication: COLITIS ULCERATIVE
     Dosage: 90 MG, EVERY 8 WEEKS, SUB Q
     Route: 058
     Dates: start: 20180501

REACTIONS (3)
  - Bone pain [None]
  - Temperature intolerance [None]
  - Hyperhidrosis [None]

NARRATIVE: CASE EVENT DATE: 20180601
